FAERS Safety Report 10036384 (Version 1)
Quarter: 2014Q1

REPORT INFORMATION
  Report Type: Spontaneous
  Country: US (occurrence: US)
  Receive Date: 20140325
  Receipt Date: 20140325
  Transmission Date: 20141002
  Serious: Yes (Hospitalization, Other)
  Sender: FDA-Public Use
  Company Number: PHHY2014US031353

PATIENT
  Age: 78 Year
  Sex: Female

DRUGS (9)
  1. GABAPENTIN [Suspect]
     Indication: NEURALGIA
     Dosage: 900 MG, UNK
  2. FUROSEMIDE [Suspect]
     Dosage: 60 MG, QD
  3. LISINOPRIL [Suspect]
     Dosage: 5 MG, QD
  4. SIMVASTATIN [Concomitant]
  5. METFORMIN [Concomitant]
  6. CITALOPRAM [Concomitant]
  7. FLUTICASONE PROPIONATE [Concomitant]
  8. ALBUTEROL [Concomitant]
  9. METOLAZONE [Concomitant]

REACTIONS (5)
  - Myoclonus [Recovered/Resolved]
  - Tremor [Recovered/Resolved]
  - Renal failure acute [Recovered/Resolved]
  - Hyperkalaemia [Recovered/Resolved]
  - Azotaemia [Recovered/Resolved]
